FAERS Safety Report 6730836-3 (Version None)
Quarter: 2010Q2

REPORT INFORMATION
  Report Type: 
  Country: None (occurrence: None)
  Receive Date: 20100518
  Receipt Date: 20100506
  Transmission Date: 20101027
  Serious: Yes (Hospitalization, Other)
  Sender: FDA-Public Use
  Company Number: US-SANOFI-AVENTIS-2010SA025739

PATIENT
  Sex: Female

DRUGS (7)
  1. PLAVIX [Suspect]
     Route: 048
     Dates: start: 20090101, end: 20090201
  2. PLAVIX [Suspect]
     Route: 048
     Dates: start: 20090101, end: 20090201
  3. PLAVIX [Suspect]
     Route: 048
     Dates: start: 20090801
  4. PLAVIX [Suspect]
     Route: 048
     Dates: start: 20090801
  5. CYMBALTA [Concomitant]
  6. INSULIN PUMP [Concomitant]
  7. KLONOPIN [Concomitant]

REACTIONS (2)
  - DEEP VEIN THROMBOSIS POSTOPERATIVE [None]
  - DIABETIC COMA [None]
